FAERS Safety Report 8643643 (Version 2)
Quarter: 2013Q1

REPORT INFORMATION
  Report Type: Spontaneous
  Country: US (occurrence: US)
  Receive Date: 20120629
  Receipt Date: 20130313
  Transmission Date: 20140127
  Serious: Yes (Congenital Anomaly, Other)
  Sender: FDA-Public Use
  Company Number: US-PFIZER INC-2012153936

PATIENT
  Sex: Female

DRUGS (1)
  1. ZOLOFT [Suspect]
     Dosage: UNK
     Route: 064
     Dates: start: 2000, end: 200207

REACTIONS (3)
  - Maternal exposure timing unspecified [Not Recovered/Not Resolved]
  - Talipes [Not Recovered/Not Resolved]
  - Congenital umbilical hernia [Not Recovered/Not Resolved]
